FAERS Safety Report 23478221 (Version 1)
Quarter: 2024Q1

REPORT INFORMATION
  Report Type: Report from Study
  Country: US (occurrence: US)
  Receive Date: 20240204
  Receipt Date: 20240204
  Transmission Date: 20240409
  Serious: No
  Sender: FDA-Public Use
  Company Number: US-EXELIXIS-CABO-23070379

PATIENT
  Sex: Male

DRUGS (27)
  1. CABOMETYX [Suspect]
     Active Substance: CABOZANTINIB S-MALATE
     Indication: Renal cancer metastatic
     Dosage: 40 MG, QD
     Route: 048
     Dates: start: 20230930
  2. VITAMINS [Concomitant]
     Active Substance: VITAMINS
  3. CETIRIZINE HCL [Concomitant]
     Active Substance: CETIRIZINE HYDROCHLORIDE
  4. CORTEF [Concomitant]
     Active Substance: HYDROCORTISONE
  5. DILTIAZEM HYDROCHLORIDE [Concomitant]
     Active Substance: DILTIAZEM HYDROCHLORIDE
  6. DOCUSATE CALCIUM [Concomitant]
     Active Substance: DOCUSATE CALCIUM
  7. DUTASTERIDE [Concomitant]
     Active Substance: DUTASTERIDE
  8. FENOFIBRATE [Concomitant]
     Active Substance: FENOFIBRATE
  9. FUROSEMIDE [Concomitant]
     Active Substance: FUROSEMIDE
  10. LANTUS SOLOSTAR [Concomitant]
     Active Substance: INSULIN GLARGINE
  11. LIPITOR [Concomitant]
     Active Substance: ATORVASTATIN CALCIUM
  12. MELATONIN [Concomitant]
     Active Substance: MELATONIN
  13. METOPROLOL SUCCINATE [Concomitant]
     Active Substance: METOPROLOL SUCCINATE
  14. MIRTAZAPINE [Concomitant]
     Active Substance: MIRTAZAPINE
  15. MORPHINE SULFATE [Concomitant]
     Active Substance: MORPHINE SULFATE
  16. OMEPRAZOLE [Concomitant]
     Active Substance: OMEPRAZOLE
  17. OXYCODONE HYDROCHLORIDE [Concomitant]
     Active Substance: OXYCODONE HYDROCHLORIDE
  18. OZEMPIC [Concomitant]
     Active Substance: SEMAGLUTIDE
  19. POTASSIUM [Concomitant]
     Active Substance: POTASSIUM
  20. PROCHLORPERAZINE [Concomitant]
     Active Substance: PROCHLORPERAZINE
  21. SERTRALINE [Concomitant]
     Active Substance: SERTRALINE HYDROCHLORIDE
  22. SINEMET [Concomitant]
     Active Substance: CARBIDOPA\LEVODOPA
  23. TAMSULOSIN HYDROCHLORIDE [Concomitant]
     Active Substance: TAMSULOSIN HYDROCHLORIDE
  24. WARFARIN SODIUM [Concomitant]
     Active Substance: WARFARIN SODIUM
  25. VITAMINS [Concomitant]
     Active Substance: VITAMINS
  26. NARCAN [Concomitant]
     Active Substance: NALOXONE HYDROCHLORIDE
  27. MINERALS\VITAMINS [Concomitant]
     Active Substance: MINERALS\VITAMINS

REACTIONS (5)
  - Proctitis [Not Recovered/Not Resolved]
  - Stomatitis [Not Recovered/Not Resolved]
  - Hypersensitivity [Unknown]
  - Herpes zoster [Recovered/Resolved]
  - Weight decreased [Recovered/Resolved]
